FAERS Safety Report 11483929 (Version 1)
Quarter: 2015Q3

REPORT INFORMATION
  Report Type: Spontaneous
  Country: US (occurrence: US)
  Receive Date: 20150909
  Receipt Date: 20150909
  Transmission Date: 20151125
  Serious: No
  Sender: FDA-Public Use
  Company Number: US-JAZZ-2015-US-001286

PATIENT
  Sex: Male

DRUGS (4)
  1. XYREM [Suspect]
     Active Substance: SODIUM OXYBATE
     Dosage: 4.5 G, BID
     Route: 048
  2. XYREM [Suspect]
     Active Substance: SODIUM OXYBATE
     Indication: NARCOLEPSY
     Dosage: 2.25 G, BID
     Route: 048
     Dates: start: 201402, end: 201402
  3. XYREM [Suspect]
     Active Substance: SODIUM OXYBATE
     Dosage: DOSE ADJUSTMENTS
     Route: 048
  4. XYREM [Suspect]
     Active Substance: SODIUM OXYBATE
     Dosage: 3.75 G, UNK

REACTIONS (12)
  - Restlessness [Not Recovered/Not Resolved]
  - Moaning [Not Recovered/Not Resolved]
  - Fall [Recovered/Resolved]
  - Obsessive-compulsive disorder [Recovering/Resolving]
  - Bone disorder [Not Recovered/Not Resolved]
  - Unevaluable event [Unknown]
  - Gait disturbance [Unknown]
  - Urinary incontinence [Not Recovered/Not Resolved]
  - Parasomnia [Not Recovered/Not Resolved]
  - Respiration abnormal [Unknown]
  - Pollakiuria [Not Recovered/Not Resolved]
  - Contusion [Not Recovered/Not Resolved]
